FAERS Safety Report 10052994 (Version 2)
Quarter: 2014Q2

REPORT INFORMATION
  Report Type: Spontaneous
  Country: ES (occurrence: ES)
  Receive Date: 20140402
  Receipt Date: 20140530
  Transmission Date: 20141212
  Serious: Yes (Other)
  Sender: FDA-Public Use
  Company Number: ES-SHIRE-ES201400812

PATIENT
  Age: 49 Year
  Sex: Female
  Weight: 63 kg

DRUGS (4)
  1. MEZAVANT [Suspect]
     Indication: COLITIS ULCERATIVE
     Dosage: 1 DF, 3X/DAY:TID
     Route: 048
     Dates: start: 201308, end: 201401
  2. MESALAZINE [Suspect]
     Indication: COLITIS
     Dosage: UNK, UNKNOWN
     Route: 061
     Dates: start: 201308, end: 201401
  3. SIMVASTATIN [Concomitant]
     Indication: HYPERCHOLESTEROLAEMIA
     Dosage: UNK, UNKNOWN
     Route: 065
     Dates: start: 2012, end: 201401
  4. SIMVASTATIN [Concomitant]
     Indication: DYSLIPIDAEMIA

REACTIONS (1)
  - Drug-induced liver injury [Recovering/Resolving]
